FAERS Safety Report 7932100-3 (Version None)
Quarter: 2011Q4

REPORT INFORMATION
  Report Type: 
  Country: None (occurrence: None)
  Receive Date: 20111121
  Receipt Date: 20111114
  Transmission Date: 20120403
  Serious: Yes (Hospitalization)
  Sender: FDA-Public Use
  Company Number: US-US-EMD SERONO, INC.-232475J10USA

PATIENT
  Sex: Female
  Weight: 64 kg

DRUGS (9)
  1. REBIF [Suspect]
     Dates: end: 20110710
  2. VASOTEC [Concomitant]
     Indication: HYPERTENSION
  3. PREMARIN [Concomitant]
     Indication: HYSTERECTOMY
  4. REBIF [Suspect]
     Indication: MULTIPLE SCLEROSIS
     Route: 058
     Dates: start: 20080201, end: 20100801
  5. ARTANE [Concomitant]
     Indication: TREMOR
  6. ATENOLOL [Concomitant]
     Indication: HYPERTENSION
  7. NEURONTIN [Concomitant]
     Indication: MULTIPLE SCLEROSIS
  8. TIZANIDINE HCL [Concomitant]
  9. CLONAZEPAM [Concomitant]

REACTIONS (6)
  - MULTIPLE SCLEROSIS RELAPSE [None]
  - PNEUMONIA [None]
  - VIRAL INFECTION [None]
  - EYE INFLAMMATION [None]
  - INFLUENZA LIKE ILLNESS [None]
  - HAEMOGLOBIN ABNORMAL [None]
